FAERS Safety Report 10756738 (Version 1)
Quarter: 2015Q1

REPORT INFORMATION
  Report Type: Report from Study
  Country: DE (occurrence: DE)
  Receive Date: 20150202
  Receipt Date: 20150202
  Transmission Date: 20150721
  Serious: Yes (Hospitalization)
  Sender: FDA-Public Use
  Company Number: PHHO2014DE010486

PATIENT

DRUGS (18)
  1. NASIVIN [Concomitant]
     Active Substance: OXYMETAZOLINE
     Indication: NASAL CONGESTION
     Dosage: 0.5 MG, PRN
     Route: 045
     Dates: start: 20140408
  2. CLOPIDOGREL [Concomitant]
     Active Substance: CLOPIDOGREL BISULFATE
     Indication: THROMBOSIS
     Dosage: 75 MG, QD
     Route: 048
     Dates: start: 20140525
  3. PROCORALAN [Concomitant]
     Active Substance: IVABRADINE
     Indication: CORONARY ARTERY DISEASE
     Dosage: 5 MG, BID
     Route: 048
     Dates: start: 20140425
  4. OMEPRAZOL//OMEPRAZOLE [Concomitant]
     Indication: PROPHYLAXIS
     Dosage: MG, EVERY 24 HOURS A DAY
     Route: 048
  5. ARAVA [Concomitant]
     Active Substance: LEFLUNOMIDE
     Indication: BACK PAIN
     Dosage: 20 MG, QD
     Route: 048
     Dates: start: 20140525
  6. SALBUTAMOL [Concomitant]
     Active Substance: ALBUTEROL
     Indication: CHRONIC OBSTRUCTIVE PULMONARY DISEASE
     Dosage: PRN
     Route: 048
  7. ALDACTONE [Concomitant]
     Active Substance: SPIRONOLACTONE
     Indication: HYPERTENSION
     Dosage: 25 MG, UNK
     Route: 048
     Dates: start: 20140425
  8. SPIRIVA [Concomitant]
     Active Substance: TIOTROPIUM BROMIDE MONOHYDRATE
     Indication: CHRONIC OBSTRUCTIVE PULMONARY DISEASE
     Dosage: 18 UG, BID
     Route: 048
  9. AIN457 [Suspect]
     Active Substance: SECUKINUMAB
     Indication: PUSTULAR PSORIASIS
     Dosage: 150 MG, UNK
     Route: 058
     Dates: start: 20140225, end: 20140708
  10. FUROSEMIDE. [Concomitant]
     Active Substance: FUROSEMIDE
     Indication: HYPERTENSION
     Dosage: 45 MG, QD
     Route: 048
     Dates: start: 20140425
  11. ZOPICLON [Concomitant]
     Active Substance: ZOPICLONE
     Indication: SLEEP DISORDER
     Dosage: 7.5 MG, QD
     Route: 048
  12. NOVAMINSULFON [Concomitant]
     Active Substance: METAMIZOLE
     Indication: BACK PAIN
     Dosage: 50 MG, PRN
     Route: 048
     Dates: start: 201303
  13. VIANI [Concomitant]
     Active Substance: FLUTICASONE PROPIONATE\SALMETEROL XINAFOATE
     Indication: CHRONIC OBSTRUCTIVE PULMONARY DISEASE
     Dosage: UNK
     Route: 048
  14. BUPRENORPHINE HCL [Concomitant]
     Active Substance: BUPRENORPHINE HYDROCHLORIDE
     Indication: BACK PAIN
     Dosage: 52 UG/HR, UNK
     Route: 062
     Dates: start: 201303
  15. ISOSORBIDE MONONITRATE. [Concomitant]
     Active Substance: ISOSORBIDE MONONITRATE
     Dosage: MG,2 TIMES PER DAY
     Route: 048
     Dates: start: 20110609
  16. CANDESARTAN CILEXETIL. [Concomitant]
     Active Substance: CANDESARTAN CILEXETIL
     Indication: HYPERTENSION
     Dosage: 8 MG, QD
     Route: 048
     Dates: start: 20140425
  17. FLUTIDE [Concomitant]
     Active Substance: FLUTICASONE PROPIONATE
     Indication: CHRONIC OBSTRUCTIVE PULMONARY DISEASE
     Dosage: 250 UG, UNK
     Route: 048
  18. ALENDRONIC ACID [Concomitant]
     Active Substance: ALENDRONIC ACID
     Indication: BACK PAIN
     Dosage: MG, EVERY WEEK
     Route: 048

REACTIONS (1)
  - Abdominal mass [Recovered/Resolved]

NARRATIVE: CASE EVENT DATE: 20140715
